FAERS Safety Report 5135013-8 (Version None)
Quarter: 2006Q4

REPORT INFORMATION
  Report Type: 
  Country: None (occurrence: None)
  Receive Date: 20060831
  Receipt Date: 20060501
  Transmission Date: 20070319
  Serious: No
  Sender: FDA-Public Use
  Company Number: 2006-BP-04320BP

PATIENT
  Age: 85 Year
  Sex: Female

DRUGS (9)
  1. SPIRIVA [Suspect]
     Indication: BRONCHIECTASIS
     Dosage: 18 MCG (18 MCG,1 IN 1 D),IH
     Route: 055
     Dates: start: 20040801
  2. SPIRIVA [Suspect]
  3. XALATAN [Concomitant]
  4. XOPENEX [Concomitant]
  5. AVALIDE (KARVEA HCT) [Concomitant]
  6. ZOLOFT [Concomitant]
  7. CALTRATE 600+D [Concomitant]
  8. CENTRUM SILVER (CENTRUM SILVER) [Concomitant]
  9. LORAZEPAM [Concomitant]

REACTIONS (4)
  - DRY MOUTH [None]
  - DYSGEUSIA [None]
  - INTRAOCULAR PRESSURE TEST ABNORMAL [None]
  - SINUS HEADACHE [None]
